FAERS Safety Report 16867524 (Version 1)
Quarter: 2019Q3

REPORT INFORMATION
  Report Type: Spontaneous
  Country: US (occurrence: US)
  Receive Date: 20190930
  Receipt Date: 20190930
  Transmission Date: 20191005
  Serious: Yes (Other)
  Sender: FDA-Public Use
  Company Number: US-BAYER-2019-176856

PATIENT
  Age: 80 Year
  Sex: Female

DRUGS (2)
  1. BAYER LOW DOSE [Suspect]
     Active Substance: ASPIRIN
     Dosage: UNK
     Route: 048
  2. GARLIQUE [Concomitant]
     Active Substance: GARLIC
     Dosage: UNK

REACTIONS (1)
  - Eye haemorrhage [Unknown]
